FAERS Safety Report 14650088 (Version 1)
Quarter: 2018Q1

REPORT INFORMATION
  Report Type: Spontaneous
  Country: SE (occurrence: SE)
  Receive Date: 20180316
  Receipt Date: 20180316
  Transmission Date: 20180509
  Serious: Yes (Other)
  Sender: FDA-Public Use
  Company Number: SE-TEVA-2018-SE-868888

PATIENT
  Sex: Male

DRUGS (1)
  1. ALFUZOSIN TEVA [Suspect]
     Active Substance: ALFUZOSIN
     Indication: URINARY TRACT DISORDER
     Route: 048

REACTIONS (4)
  - Medication error [Unknown]
  - Drug ineffective [Unknown]
  - Loss of consciousness [Unknown]
  - Blood pressure decreased [Unknown]
